FAERS Safety Report 17926462 (Version 1)
Quarter: 2020Q2

REPORT INFORMATION
  Report Type: Spontaneous
  Country: CN (occurrence: CN)
  Receive Date: 20200623
  Receipt Date: 20200623
  Transmission Date: 20200714
  Serious: Yes (Other)
  Sender: FDA-Public Use
  Company Number: CN-ROCHE-2626171

PATIENT
  Age: 53 Year
  Sex: Male

DRUGS (2)
  1. ATEZOLIZUMAB. [Suspect]
     Active Substance: ATEZOLIZUMAB
     Indication: NON-SMALL CELL LUNG CANCER
     Route: 041
     Dates: start: 2019
  2. NAB-PACLITAXEL [Concomitant]
     Active Substance: PACLITAXEL
     Indication: NON-SMALL CELL LUNG CANCER
     Route: 065
     Dates: start: 2019

REACTIONS (2)
  - Psoriasis [Recovered/Resolved]
  - Skin toxicity [Recovered/Resolved]
